FAERS Safety Report 12506293 (Version 1)
Quarter: 2016Q2

REPORT INFORMATION
  Report Type: Spontaneous
  Country: US (occurrence: US)
  Receive Date: 20160628
  Receipt Date: 20160628
  Transmission Date: 20160815
  Serious: Yes (Death)
  Sender: FDA-Public Use
  Company Number: US-BRACCO-012357

PATIENT
  Age: 74 Year
  Sex: Male
  Weight: 194 kg

DRUGS (1)
  1. PROHANCE [Suspect]
     Active Substance: GADOTERIDOL
     Indication: NUCLEAR MAGNETIC RESONANCE IMAGING
     Route: 042
     Dates: start: 20150708, end: 20150708

REACTIONS (1)
  - Anaphylactoid reaction [Fatal]

NARRATIVE: CASE EVENT DATE: 20150708
